FAERS Safety Report 4980310-X (Version None)
Quarter: 2006Q2

REPORT INFORMATION
  Report Type: 
  Country: None (occurrence: None)
  Receive Date: 20060421
  Receipt Date: 20060421
  Transmission Date: 20061013
  Serious: No
  Sender: FDA-Public Use
  Company Number: None

PATIENT

DRUGS (1)
  1. ALLOPURINOL [Suspect]
     Indication: GOUTY ARTHRITIS
     Dosage: 1 TABLET TWICE DAILY
     Dates: start: 20050101, end: 20060401

REACTIONS (1)
  - PHARMACEUTICAL PRODUCT COMPLAINT [None]
